FAERS Safety Report 12677830 (Version 2)
Quarter: 2016Q3

REPORT INFORMATION
  Report Type: Report from Study
  Country: CA (occurrence: CA)
  Receive Date: 20160823
  Receipt Date: 20160914
  Transmission Date: 20161109
  Serious: Yes (Hospitalization, Other)
  Sender: FDA-Public Use
  Company Number: CA-009507513-1608CAN009760

PATIENT
  Sex: Female
  Weight: 78.5 kg

DRUGS (1)
  1. PEMBROLIZUMAB. [Suspect]
     Active Substance: PEMBROLIZUMAB
     Indication: METASTATIC MALIGNANT MELANOMA
     Dosage: 157 MG, Q3W (DOSE ALSO REFERRED AS AS STRENGTH 2 MG/KG)
     Route: 042
     Dates: start: 20160727, end: 2016

REACTIONS (1)
  - Malignant neoplasm progression [Unknown]

NARRATIVE: CASE EVENT DATE: 2016
